FAERS Safety Report 11282421 (Version 2)
Quarter: 2015Q3

REPORT INFORMATION
  Report Type: Spontaneous
  Country: US (occurrence: US)
  Receive Date: 20150720
  Receipt Date: 20150723
  Transmission Date: 20151125
  Serious: Yes (Other)
  Sender: FDA-Public Use
  Company Number: US-ALVOGEN-2015AL002848

PATIENT
  Sex: Female

DRUGS (1)
  1. ATENOLOL. [Suspect]
     Active Substance: ATENOLOL
     Indication: BLOOD PRESSURE MEASUREMENT
     Route: 048

REACTIONS (5)
  - Nerve injury [Recovering/Resolving]
  - Paraesthesia [Recovering/Resolving]
  - Palpitations [Recovered/Resolved]
  - Sensory loss [Recovering/Resolving]
  - Pain in extremity [Recovering/Resolving]
